FAERS Safety Report 6545188-1 (Version None)
Quarter: 2010Q1

REPORT INFORMATION
  Report Type: 
  Country: None (occurrence: None)
  Receive Date: 20100121
  Receipt Date: 20100111
  Transmission Date: 20100710
  Serious: Yes (Other)
  Sender: FDA-Public Use
  Company Number: SE-BAYER-201010181GPV

PATIENT
  Sex: Female

DRUGS (2)
  1. MIRENA [Suspect]
     Indication: DRUG USE FOR UNKNOWN INDICATION
     Route: 015
     Dates: start: 20080801, end: 20100105
  2. ANTIEPILEPTICS [Concomitant]

REACTIONS (4)
  - GENITAL HAEMORRHAGE [None]
  - MIGRAINE [None]
  - SYNCOPE [None]
  - VOMITING [None]
